FAERS Safety Report 18997683 (Version 4)
Quarter: 2021Q2

REPORT INFORMATION
  Report Type: Report from Study
  Country: GB (occurrence: GB)
  Receive Date: 20210311
  Receipt Date: 20210415
  Transmission Date: 20210717
  Serious: Yes (Hospitalization)
  Sender: FDA-Public Use
  Company Number: GB-ACCORD-219209

PATIENT
  Age: 63 Year
  Sex: Male
  Weight: 80.1 kg

DRUGS (17)
  1. ATEZOLIZUMAB. [Suspect]
     Active Substance: ATEZOLIZUMAB
     Indication: NON-SMALL CELL LUNG CANCER
     Route: 041
     Dates: start: 20210210
  2. GEMCITABINE. [Concomitant]
     Active Substance: GEMCITABINE
     Indication: NEOPLASM MALIGNANT
  3. VINORELBINE [Concomitant]
     Active Substance: VINORELBINE TARTRATE
     Indication: NEOPLASM MALIGNANT
  4. METOCLOPRAMIDE. [Concomitant]
     Active Substance: METOCLOPRAMIDE
  5. CARBOPLATIN. [Suspect]
     Active Substance: CARBOPLATIN
     Indication: NON-SMALL CELL LUNG CANCER
     Route: 065
  6. ATORVASTATIN [Concomitant]
     Active Substance: ATORVASTATIN
     Indication: PROPHYLAXIS
     Route: 065
     Dates: start: 20120625
  7. METFORMIN [Concomitant]
     Active Substance: METFORMIN HYDROCHLORIDE
     Indication: TYPE 2 DIABETES MELLITUS
     Route: 065
     Dates: start: 20140324
  8. OSIMERTINIB. [Concomitant]
     Active Substance: OSIMERTINIB
     Indication: NEOPLASM MALIGNANT
  9. PACLITAXEL/PACLITAXEL LIPOSOME [Suspect]
     Active Substance: PACLITAXEL
     Indication: NON-SMALL CELL LUNG CANCER
     Route: 065
  10. BEVACIZUMAB. [Suspect]
     Active Substance: BEVACIZUMAB
     Indication: NON-SMALL CELL LUNG CANCER
     Route: 042
  11. ONDANSETRON [Concomitant]
     Active Substance: ONDANSETRON
  12. CARBOPLATIN. [Concomitant]
     Active Substance: CARBOPLATIN
     Indication: NEOPLASM MALIGNANT
  13. CISPLATIN. [Concomitant]
     Active Substance: CISPLATIN
     Indication: NEOPLASM MALIGNANT
  14. AMLODIPINE [Concomitant]
     Active Substance: AMLODIPINE BESYLATE
     Indication: HYPERTENSION
     Route: 065
     Dates: start: 20120203
  15. COVID?19 VACCINE NOS. [Concomitant]
     Active Substance: COVID-19 VACCINE NOS
     Indication: PROPHYLAXIS
     Route: 065
     Dates: start: 20210204, end: 20210204
  16. AFATINIB [Concomitant]
     Active Substance: AFATINIB
     Indication: NEOPLASM MALIGNANT
  17. GEFITINIB. [Concomitant]
     Active Substance: GEFITINIB
     Indication: NEOPLASM MALIGNANT

REACTIONS (4)
  - Hyponatraemia [Recovered/Resolved]
  - Vomiting [Recovered/Resolved]
  - Fall [Unknown]
  - Nausea [Recovering/Resolving]

NARRATIVE: CASE EVENT DATE: 20210214
